FAERS Safety Report 17081027 (Version 2)
Quarter: 2020Q1

REPORT INFORMATION
  Report Type: Spontaneous
  Country: US (occurrence: US)
  Receive Date: 20191127
  Receipt Date: 20200304
  Transmission Date: 20200409
  Serious: Yes (Other)
  Sender: FDA-Public Use
  Company Number: US-BAYER-2019-214759

PATIENT
  Age: 48 Year
  Sex: Female

DRUGS (8)
  1. TESTOSTERONE. [Concomitant]
     Active Substance: TESTOSTERONE
  2. FLAGYL PLUS [Concomitant]
     Dosage: 500 MG
     Route: 048
  3. DOXYCYCLINE HYCLATE. [Concomitant]
     Active Substance: DOXYCYCLINE HYCLATE
     Dosage: 100 MG
     Route: 048
  4. VITAMINS NOS [Concomitant]
     Active Substance: VITAMINS
     Dosage: 9 MG
     Route: 048
  5. MIRENA [Suspect]
     Active Substance: LEVONORGESTREL
     Indication: CONTRACEPTION
     Dosage: 20 MCG/24HR, CONT
     Route: 015
     Dates: start: 201502
  6. CYTOTEC [Concomitant]
     Active Substance: MISOPROSTOL
  7. NP THYROID [Concomitant]
     Active Substance: LEVOTHYROXINE\LIOTHYRONINE
     Dosage: 60 MG
     Route: 048
  8. TRINTELLIX [Concomitant]
     Active Substance: VORTIOXETINE HYDROBROMIDE

REACTIONS (5)
  - Genital haemorrhage [None]
  - Weight increased [None]
  - Infection [None]
  - Depressive symptom [None]
  - Abdominal pain lower [None]
